FAERS Safety Report 9298451 (Version 5)
Quarter: 2013Q4

REPORT INFORMATION
  Report Type: Spontaneous
  Country: US (occurrence: US)
  Receive Date: 20130520
  Receipt Date: 20131119
  Transmission Date: 20140711
  Serious: Yes (Hospitalization, Disabling, Other)
  Sender: FDA-Public Use
  Company Number: US-009507513-1203USA03392

PATIENT
  Sex: Female
  Weight: 102.95 kg

DRUGS (6)
  1. FOSAMAX [Suspect]
     Indication: OSTEOPOROSIS
     Dosage: 10 MG, QD
     Route: 048
     Dates: start: 19970418, end: 200211
  2. FOSAMAX [Suspect]
     Dosage: 70 MG, UNK
     Route: 048
     Dates: start: 200211
  3. ALENDRONATE SODIUM [Suspect]
     Indication: OSTEOPOROSIS
     Dosage: 10 MG, QD
     Dates: start: 20020322
  4. ALENDRONATE SODIUM [Suspect]
     Dosage: 70 MG, QW
     Route: 048
     Dates: start: 20080423
  5. CALCIUM (UNSPECIFIED) [Concomitant]
     Indication: OSTEOPOROSIS PROPHYLAXIS
     Dosage: 500 MG, BID
     Dates: start: 1997, end: 2012
  6. VITAMIN D (UNSPECIFIED) [Concomitant]
     Indication: OSTEOPOROSIS PROPHYLAXIS
     Dosage: UNK
     Dates: start: 1997, end: 2012

REACTIONS (23)
  - Intramedullary rod insertion [Unknown]
  - Osteoporosis [Not Recovered/Not Resolved]
  - Stress fracture [Not Recovered/Not Resolved]
  - Femur fracture [Not Recovered/Not Resolved]
  - Bone density decreased [Not Recovered/Not Resolved]
  - Bronchitis [Unknown]
  - Cough [Unknown]
  - Femur fracture [Unknown]
  - Foot fracture [Unknown]
  - Diabetes mellitus [Unknown]
  - Nasal obstruction [Unknown]
  - Nail operation [Unknown]
  - Haematochezia [Unknown]
  - Post procedural haemorrhage [Recovering/Resolving]
  - Oestrogen deficiency [Unknown]
  - Ankle fracture [Unknown]
  - Hormone level abnormal [Unknown]
  - Skin lesion [Unknown]
  - Papilloma [Unknown]
  - Dyspnoea [Unknown]
  - Anxiety [Unknown]
  - Hysterectomy [Unknown]
  - Dystrophic calcification [Unknown]
